FAERS Safety Report 18731993 (Version 2)
Quarter: 2021Q1

REPORT INFORMATION
  Report Type: Spontaneous
  Country: FR (occurrence: FR)
  Receive Date: 20210112
  Receipt Date: 20210119
  Transmission Date: 20210419
  Serious: Yes (Other)
  Sender: FDA-Public Use
  Company Number: FR-BAYER-2021-020656

PATIENT
  Age: 57 Year
  Sex: Male

DRUGS (1)
  1. VITRAKVI [Suspect]
     Active Substance: LAROTRECTINIB
     Indication: LUNG SQUAMOUS CELL CARCINOMA METASTATIC
     Dosage: UNK
     Dates: start: 201911, end: 202001

REACTIONS (1)
  - Lung squamous cell carcinoma metastatic [Unknown]

NARRATIVE: CASE EVENT DATE: 202001
